FAERS Safety Report 8792660 (Version 1)
Quarter: 2012Q4

REPORT INFORMATION
  Report Type: 
  Country: US (occurrence: US)
  Receive Date: 20120918
  Receipt Date: 20120918
  Transmission Date: 20130627
  Serious: Yes (Hospitalization)
  Sender: FDA-Public Use
  Company Number: US-GLAXOSMITHKLINE-A0815644A

PATIENT
  Sex: Male
  Weight: 113.6 kg

DRUGS (5)
  1. AVANDIA [Suspect]
     Indication: TYPE 2 DIABETES MELLITUS
     Dosage: 4MG Per day
     Route: 048
     Dates: end: 200708
  2. TOPROL [Concomitant]
  3. COUMADIN [Concomitant]
  4. GLYBURIDE [Concomitant]
  5. TOPROL [Concomitant]

REACTIONS (7)
  - Myocardial infarction [Not Recovered/Not Resolved]
  - Intestinal obstruction [Unknown]
  - Cardiac failure congestive [Unknown]
  - Diabetes mellitus [Unknown]
  - Intestinal ischaemia [Unknown]
  - Arrhythmia [Unknown]
  - Cardiac disorder [Unknown]
